FAERS Safety Report 5235027-3 (Version None)
Quarter: 2007Q1

REPORT INFORMATION
  Report Type: 
  Country: None (occurrence: None)
  Receive Date: 20070207
  Receipt Date: 20070129
  Transmission Date: 20070707
  Serious: Yes (Other)
  Sender: FDA-Public Use
  Company Number: 163-21880-06081343

PATIENT
  Age: 83 Year
  Sex: Female

DRUGS (3)
  1. REVLIMID [Suspect]
     Indication: MULTIPLE MYELOMA
     Dosage: 25 MG, 1 IN 1 D, ORAL
     Route: 048
     Dates: start: 20060804
  2. DEXAMETHASONE TAB [Suspect]
     Indication: DRUG USE FOR UNKNOWN INDICATION
  3. VELCADE [Suspect]
     Indication: DRUG USE FOR UNKNOWN INDICATION

REACTIONS (7)
  - ASTHENIA [None]
  - DYSGEUSIA [None]
  - EATING DISORDER [None]
  - GASTRIC DISORDER [None]
  - LACRIMATION INCREASED [None]
  - STEVENS-JOHNSON SYNDROME [None]
  - SWELLING FACE [None]
